FAERS Safety Report 19951550 (Version 9)
Quarter: 2022Q4

REPORT INFORMATION
  Report Type: Report from Study
  Country: US (occurrence: US)
  Receive Date: 20211013
  Receipt Date: 20221116
  Transmission Date: 20230113
  Serious: Yes (Other)
  Sender: FDA-Public Use
  Company Number: US-TAKEDA-2021TUS060224

PATIENT
  Age: 53 Year
  Sex: Female

DRUGS (2)
  1. VEDOLIZUMAB [Suspect]
     Active Substance: VEDOLIZUMAB
     Indication: Colitis ulcerative
     Dosage: 300 MILLIGRAM
     Route: 042
     Dates: start: 20210923
  2. VEDOLIZUMAB [Suspect]
     Active Substance: VEDOLIZUMAB
     Indication: Crohn^s disease

REACTIONS (18)
  - Colitis ulcerative [Unknown]
  - Haematochezia [Recovered/Resolved]
  - Postmenopausal haemorrhage [Unknown]
  - Irritable bowel syndrome [Unknown]
  - Breast cyst [Unknown]
  - Anxiety [Unknown]
  - Reflux laryngitis [Unknown]
  - Hypercholesterolaemia [Unknown]
  - Lactose intolerance [Unknown]
  - Mammogram abnormal [Unknown]
  - Gastrointestinal sounds abnormal [Not Recovered/Not Resolved]
  - Mucous stools [Not Recovered/Not Resolved]
  - Alopecia [Not Recovered/Not Resolved]
  - Abdominal distension [Not Recovered/Not Resolved]
  - Arthralgia [Not Recovered/Not Resolved]
  - Back pain [Not Recovered/Not Resolved]
  - Fatigue [Not Recovered/Not Resolved]
  - Cough [Not Recovered/Not Resolved]

NARRATIVE: CASE EVENT DATE: 20211001
